FAERS Safety Report 7289180-0 (Version None)
Quarter: 2011Q1

REPORT INFORMATION
  Report Type: 
  Country: None (occurrence: None)
  Receive Date: 20110211
  Receipt Date: 20110208
  Transmission Date: 20110831
  Serious: Yes (Hospitalization, Other)
  Sender: FDA-Public Use
  Company Number: US-AMGEN-USASP2011007557

PATIENT
  Age: 76 Year
  Sex: Male
  Weight: 126.6 kg

DRUGS (16)
  1. ZOCOR [Concomitant]
  2. PREDNISONE [Concomitant]
  3. XANAX [Concomitant]
  4. POTASSIUM CHLORIDE [Concomitant]
  5. NPLATE [Suspect]
     Indication: IDIOPATHIC THROMBOCYTOPENIC PURPURA
     Dates: start: 20110125, end: 20110201
  6. METOPROLOL [Concomitant]
  7. PRILOSEC [Concomitant]
  8. LASIX [Concomitant]
  9. BENADRYL [Concomitant]
  10. NPLATE [Suspect]
     Dates: start: 20110125, end: 20110207
  11. IPRATROPIUM BROMIDE [Concomitant]
  12. FENOTEROL [Concomitant]
  13. FLUNISOLIDE [Concomitant]
  14. MAGNESIUM [Concomitant]
  15. LISINOPRIL [Concomitant]
  16. CORTICOSTEROIDS [Concomitant]

REACTIONS (6)
  - ARTHRALGIA [None]
  - FALL [None]
  - GAIT DISTURBANCE [None]
  - BONE PAIN [None]
  - LACERATION [None]
  - MYALGIA [None]
